FAERS Safety Report 5206584-8 (Version None)
Quarter: 2007Q1

REPORT INFORMATION
  Report Type: 
  Country: None (occurrence: None)
  Receive Date: 20070109
  Receipt Date: 20061227
  Transmission Date: 20070707
  Serious: Yes (Hospitalization)
  Sender: FDA-Public Use
  Company Number: 2005BI016871

PATIENT
  Age: 43 Year
  Sex: Male

DRUGS (1)
  1. AVONEX [Suspect]
     Indication: MULTIPLE SCLEROSIS
     Dosage: 30 UG; QW; IM
     Route: 030
     Dates: start: 20050708

REACTIONS (6)
  - CONDITION AGGRAVATED [None]
  - DIABETES MELLITUS INADEQUATE CONTROL [None]
  - MULTIPLE SCLEROSIS [None]
  - NAUSEA [None]
  - ORAL INTAKE REDUCED [None]
  - ROTATOR CUFF SYNDROME [None]
